FAERS Safety Report 8294543-0 (Version None)
Quarter: 2012Q2

REPORT INFORMATION
  Report Type: 
  Country: None (occurrence: None)
  Receive Date: 20120418
  Receipt Date: 20120411
  Transmission Date: 20120825
  Serious: Yes (Hospitalization)
  Sender: FDA-Public Use
  Company Number: IT-FRI-1000029826

PATIENT
  Sex: Male

DRUGS (1)
  1. CAMPRAL [Suspect]
     Indication: ALCOHOLISM

REACTIONS (1)
  - EJACULATION DELAYED [None]
